FAERS Safety Report 24787814 (Version 2)
Quarter: 2025Q1

REPORT INFORMATION
  Report Type: Report from Study
  Country: TW (occurrence: TW)
  Receive Date: 20241230
  Receipt Date: 20250113
  Transmission Date: 20250408
  Serious: Yes (Death, Other)
  Sender: ALEXION PHARMACEUTICALS
  Company Number: TW-AstraZeneca-CH-00774377A

PATIENT
  Age: 64 Year
  Weight: 49.6 kg

DRUGS (8)
  1. SOLIRIS [Suspect]
     Active Substance: ECULIZUMAB
     Indication: Atypical haemolytic uraemic syndrome
     Dosage: 900 MILLIGRAM, QW (FOR 4 WEEKS)
     Route: 042
  2. SOLIRIS [Suspect]
     Active Substance: ECULIZUMAB
     Dosage: 900 MILLIGRAM, QW (FOR 4 WEEKS)
  3. SOLIRIS [Suspect]
     Active Substance: ECULIZUMAB
     Dosage: 900 MILLIGRAM, QW (FOR 4 WEEKS)
     Route: 042
  4. SOLIRIS [Suspect]
     Active Substance: ECULIZUMAB
     Dosage: 900 MILLIGRAM, QW (FOR 4 WEEKS)
  5. SOLIRIS [Suspect]
     Active Substance: ECULIZUMAB
     Dosage: 1200 MILLIGRAM, QW
     Route: 042
  6. SOLIRIS [Suspect]
     Active Substance: ECULIZUMAB
     Dosage: 1200 MILLIGRAM, QW
  7. SOLIRIS [Suspect]
     Active Substance: ECULIZUMAB
     Dosage: 1200 MILLIGRAM, QW
     Route: 042
  8. SOLIRIS [Suspect]
     Active Substance: ECULIZUMAB
     Dosage: 1200 MILLIGRAM, QW

REACTIONS (1)
  - Pneumonia [Fatal]
